FAERS Safety Report 23387233 (Version 1)
Quarter: 2024Q1

REPORT INFORMATION
  Report Type: Spontaneous
  Country: US (occurrence: None)
  Receive Date: 20240109
  Receipt Date: 20240109
  Transmission Date: 20240410
  Serious: No
  Sender: FDA-Public Use
  Company Number: None

PATIENT
  Sex: 0

DRUGS (1)
  1. PHENTERMINE [Suspect]
     Active Substance: PHENTERMINE

REACTIONS (2)
  - Treatment failure [None]
  - Vomiting [None]
